FAERS Safety Report 9186417 (Version 2)
Quarter: 2013Q2

REPORT INFORMATION
  Report Type: Spontaneous
  Country: FR (occurrence: FR)
  Receive Date: 20130325
  Receipt Date: 20130404
  Transmission Date: 20140414
  Serious: Yes (Other)
  Sender: FDA-Public Use
  Company Number: FR-JNJFOC-20130308980

PATIENT
  Sex: 0

DRUGS (1)
  1. XEPLION [Suspect]
     Indication: PRODUCT USED FOR UNKNOWN INDICATION
     Route: 030

REACTIONS (3)
  - Schizophrenia [Unknown]
  - Drug ineffective [Unknown]
  - Delirium [Unknown]
